FAERS Safety Report 5600669-X (Version None)
Quarter: 2008Q1

REPORT INFORMATION
  Report Type: 
  Country: None (occurrence: None)
  Receive Date: 20080123
  Receipt Date: 20080111
  Transmission Date: 20080703
  Serious: Yes (Hospitalization, Other)
  Sender: FDA-Public Use
  Company Number: US-PFIZER INC-2008003479

PATIENT
  Sex: Male
  Weight: 90.7 kg

DRUGS (3)
  1. CHANTIX [Suspect]
     Indication: SMOKING CESSATION THERAPY
     Dosage: FREQ:EVERY DAY
     Route: 048
     Dates: start: 20071201, end: 20071201
  2. ALEVE [Concomitant]
     Route: 048
  3. VERAPAMIL [Concomitant]
     Route: 048

REACTIONS (7)
  - ABNORMAL BEHAVIOUR [None]
  - ANGER [None]
  - JAW FRACTURE [None]
  - MUSCULOSKELETAL DEFORMITY [None]
  - PHYSICAL ASSAULT [None]
  - SCAR [None]
  - SUICIDAL BEHAVIOUR [None]
